FAERS Safety Report 23702130 (Version 1)
Quarter: 2024Q2

REPORT INFORMATION
  Report Type: Spontaneous
  Country: DE (occurrence: None)
  Receive Date: 20240403
  Receipt Date: 20240403
  Transmission Date: 20240715
  Serious: Yes (Disabling)
  Sender: FDA-Public Use
  Company Number: None

PATIENT
  Age: 55 Year
  Sex: Male
  Weight: 88 kg

DRUGS (1)
  1. CIPROFLOXACIN [Suspect]
     Active Substance: CIPROFLOXACIN
     Indication: Prostatitis

REACTIONS (13)
  - Myalgia [None]
  - Myalgia [None]
  - Arthralgia [None]
  - Neurological symptom [None]
  - Paraesthesia [None]
  - Muscle spasms [None]
  - Vitreous floaters [None]
  - Palpitations [None]
  - Insomnia [None]
  - Fatigue [None]
  - Dry mouth [None]
  - Salivary gland enlargement [None]
  - Adverse drug reaction [None]

NARRATIVE: CASE EVENT DATE: 20190411
